FAERS Safety Report 10698289 (Version 1)
Quarter: 2014Q4

REPORT INFORMATION
  Report Type: Spontaneous
  Country: US (occurrence: None)
  Receive Date: 20141223
  Receipt Date: 20141223
  Transmission Date: 20150529
  Serious: No
  Sender: FDA-Public Use
  Company Number: 1000071188

PATIENT
  Age: 58 Year
  Sex: Female

DRUGS (19)
  1. COREG [Concomitant]
     Active Substance: CARVEDILOL
  2. PREMARIN [Concomitant]
     Active Substance: ESTROGENS, CONJUGATED
  3. ZOCOR [Concomitant]
     Active Substance: SIMVASTATIN
  4. NAPROXEN. [Concomitant]
     Active Substance: NAPROXEN
  5. LATUDA (LURASIDONE HYDROCHLORIDE) [Concomitant]
  6. PRISTIQ EXTENDED RELEASE [Concomitant]
     Active Substance: DESVENLAFAXINE SUCCINATE
  7. NITROSTAT [Concomitant]
     Active Substance: NITROGLYCERIN
  8. LYRICA [Concomitant]
     Active Substance: PREGABALIN
  9. NORCO (VICODIN) [Concomitant]
  10. ASPIRIN. [Concomitant]
     Active Substance: ASPIRIN
  11. LINZESS [Suspect]
     Active Substance: LINACLOTIDE
     Indication: CONSTIPATION
     Dosage: 145MCG (145MCG, 1 IN 1)
     Dates: start: 201409, end: 20140930
  12. OXYBUTYNIN CHLORIDE. [Concomitant]
     Active Substance: OXYBUTYNIN CHLORIDE
  13. LOTENSIN [Concomitant]
     Active Substance: BENAZEPRIL HYDROCHLORIDE
  14. IMDUR [Concomitant]
     Active Substance: ISOSORBIDE MONONITRATE
  15. BENTYL [Concomitant]
     Active Substance: DICYCLOMINE HYDROCHLORIDE
  16. AMBIEN [Concomitant]
     Active Substance: ZOLPIDEM TARTRATE
  17. PLAVIX [Concomitant]
     Active Substance: CLOPIDOGREL BISULFATE
  18. VALIUM [Concomitant]
     Active Substance: DIAZEPAM
  19. TRAZODONE [Concomitant]
     Active Substance: TRAZODONE HYDROCHLORIDE

REACTIONS (2)
  - Faecal incontinence [None]
  - Diarrhoea [None]

NARRATIVE: CASE EVENT DATE: 201409
